FAERS Safety Report 5863912-8 (Version None)
Quarter: 2008Q3

REPORT INFORMATION
  Report Type: 
  Country: None (occurrence: None)
  Receive Date: 20080829
  Receipt Date: 20080822
  Transmission Date: 20090109
  Serious: Yes (Hospitalization)
  Sender: FDA-Public Use
  Company Number: US-JNJFOC-20080704503

PATIENT
  Sex: Male
  Weight: 97.52 kg

DRUGS (1)
  1. REMICADE [Suspect]
     Indication: PSORIASIS
     Route: 042

REACTIONS (4)
  - INTESTINAL OBSTRUCTION [None]
  - PARKINSON'S DISEASE [None]
  - PNEUMONIA [None]
  - URINE OUTPUT DECREASED [None]
